FAERS Safety Report 9014117 (Version 1)
Quarter: 2013Q1

REPORT INFORMATION
  Report Type: Spontaneous
  Country: US (occurrence: US)
  Receive Date: 20130115
  Receipt Date: 20130115
  Transmission Date: 20140127
  Serious: Yes (Hospitalization)
  Sender: FDA-Public Use
  Company Number: US-JNJFOC-20130104017

PATIENT
  Age: 72 Year
  Sex: Female
  Weight: 95.26 kg

DRUGS (2)
  1. SUDAFED 12 HOUR [Suspect]
     Route: 048
  2. SUDAFED 12 HOUR [Suspect]
     Indication: PRODUCT USED FOR UNKNOWN INDICATION
     Route: 048
     Dates: start: 20130102, end: 20130104

REACTIONS (7)
  - Chest discomfort [Recovering/Resolving]
  - Dyspnoea [Recovered/Resolved]
  - Palpitations [Recovering/Resolving]
  - Fear [Recovering/Resolving]
  - Feeling abnormal [Recovering/Resolving]
  - Heart rate decreased [Recovered/Resolved]
  - Nasopharyngitis [Unknown]
